FAERS Safety Report 19185659 (Version 1)
Quarter: 2021Q2

REPORT INFORMATION
  Report Type: Spontaneous
  Country: US (occurrence: US)
  Receive Date: 20210427
  Receipt Date: 20210427
  Transmission Date: 20210717
  Serious: Yes (Other)
  Sender: FDA-Public Use
  Company Number: US-BRACCO-2021US01049

PATIENT
  Age: 97 Year
  Sex: Female

DRUGS (2)
  1. VARIBAR NECTAR [Suspect]
     Active Substance: BARIUM SULFATE
     Dosage: UNK
     Route: 048
     Dates: start: 20210219, end: 20210219
  2. VARIBAR THIN LIQUID [Concomitant]
     Active Substance: BARIUM SULFATE
     Indication: BARIUM SWALLOW
     Dosage: UNK
     Route: 048
     Dates: start: 20210219, end: 20210219

REACTIONS (1)
  - Aspiration [Unknown]

NARRATIVE: CASE EVENT DATE: 20210219
